FAERS Safety Report 10247237 (Version 1)
Quarter: 2014Q2

REPORT INFORMATION
  Report Type: Spontaneous
  Country: BR (occurrence: BR)
  Receive Date: 20140619
  Receipt Date: 20140619
  Transmission Date: 20141212
  Serious: Yes (Other)
  Sender: FDA-Public Use
  Company Number: BR-ASTRAZENECA-2014SE41388

PATIENT
  Age: 59 Year
  Sex: Female
  Weight: 76.6 kg

DRUGS (5)
  1. ATACAND [Suspect]
     Indication: HYPERTENSION
     Route: 048
     Dates: start: 2004, end: 201403
  2. ATACAND COMB [Suspect]
     Indication: HYPERTENSION
     Dosage: 16 MG/ 5 MG, DAILY
     Route: 048
     Dates: start: 201403, end: 20140523
  3. OMEPRAZOLE [Suspect]
     Indication: DYSPEPSIA
     Route: 048
     Dates: start: 201312
  4. SYNTHROID [Concomitant]
     Dosage: UNKNOWN DOSE, DAILY
     Route: 048
     Dates: start: 1998
  5. LABIRIN [Concomitant]
     Indication: LABYRINTHITIS
     Dosage: UNKNOWN DOSE, AS REQUIRED
     Route: 048
     Dates: start: 2010

REACTIONS (4)
  - Blood pressure increased [Recovered/Resolved]
  - Labyrinthitis [Recovering/Resolving]
  - Dyspepsia [Recovered/Resolved]
  - Peripheral swelling [Recovering/Resolving]
